FAERS Safety Report 7553593-X (Version None)
Quarter: 2011Q2

REPORT INFORMATION
  Report Type: 
  Country: None (occurrence: None)
  Receive Date: 20110617
  Receipt Date: 20110606
  Transmission Date: 20111010
  Serious: Yes (Hospitalization)
  Sender: FDA-Public Use
  Company Number: US-JNJFOC-20110605556

PATIENT
  Sex: Female
  Weight: 58.97 kg

DRUGS (19)
  1. FENTANYL-100 [Suspect]
     Indication: PAIN
     Dosage: MALLINCKRODT
     Route: 062
     Dates: start: 20110101
  2. FENTANYL-100 [Suspect]
     Indication: PAIN
     Route: 062
     Dates: start: 20050101, end: 20100101
  3. FENTANYL-100 [Suspect]
     Dosage: NDC#0781-7243-55
     Route: 062
     Dates: start: 20100101, end: 20110101
  4. FENTANYL CITRATE [Suspect]
     Indication: PAIN
     Route: 062
     Dates: start: 20110101, end: 20110101
  5. OXYCODONE HCL [Concomitant]
     Indication: BREAKTHROUGH PAIN
     Route: 048
  6. CHANTIX [Concomitant]
     Indication: TOBACCO USER
     Route: 048
     Dates: start: 20101201
  7. VICODIN [Suspect]
     Indication: BREAKTHROUGH PAIN
     Dosage: AS NEEDED
     Route: 048
  8. ASPIRIN [Concomitant]
     Indication: PROPHYLAXIS
     Route: 048
  9. LISINOPRIL [Concomitant]
     Indication: BLOOD PRESSURE
     Route: 048
  10. RANEXA [Concomitant]
     Indication: ANGINA PECTORIS
     Route: 048
  11. LYRICA [Concomitant]
     Indication: FIBROMYALGIA
     Route: 048
     Dates: start: 20110101
  12. VALIUM [Concomitant]
     Indication: SLEEP DISORDER
     Route: 048
  13. ZOCOR [Concomitant]
     Indication: BLOOD CHOLESTEROL
     Route: 048
  14. EFFEXOR [Concomitant]
     Indication: ANXIETY
     Route: 048
  15. RANITIDINE [Concomitant]
     Indication: GASTRIC DISORDER
     Route: 048
  16. PLAVIX [Concomitant]
     Indication: STENT PLACEMENT
     Route: 048
  17. ATENOLOL [Concomitant]
     Indication: BLOOD PRESSURE
     Route: 048
  18. SPIRONOLACTONE [Concomitant]
     Indication: DIURETIC THERAPY
     Route: 048
  19. PREMARIN [Concomitant]
     Indication: HORMONE REPLACEMENT THERAPY
     Route: 048

REACTIONS (5)
  - HOSPITALISATION [None]
  - MALAISE [None]
  - LARGE INTESTINE PERFORATION [None]
  - INFECTION [None]
  - MALNUTRITION [None]
